FAERS Safety Report 16791516 (Version 1)
Quarter: 2019Q3

REPORT INFORMATION
  Report Type: Report from Study
  Country: CZ (occurrence: CZ)
  Receive Date: 20190910
  Receipt Date: 20190910
  Transmission Date: 20191005
  Serious: Yes (Other)
  Sender: FDA-Public Use
  Company Number: CZ-ROCHE-2396424

PATIENT

DRUGS (3)
  1. BEVACIZUMAB. [Suspect]
     Active Substance: BEVACIZUMAB
     Indication: NON-SMALL CELL LUNG CANCER
     Dosage: EVERY 21 DAYS AS ONE CYCLE.
     Route: 065
  2. CARBOPLATIN. [Suspect]
     Active Substance: CARBOPLATIN
     Indication: NON-SMALL CELL LUNG CANCER
     Dosage: AUC 5?EVERY 21 DAYS AS ONE CYCLE.
     Route: 042
  3. VINORELBINE [Suspect]
     Active Substance: VINORELBINE TARTRATE
     Indication: NON-SMALL CELL LUNG CANCER
     Dosage: ON DAY 1 AND 8 OF EACH CYCLE.?EVERY 21 DAYS AS ONE CYCLE.
     Route: 048

REACTIONS (6)
  - Pneumonia [Unknown]
  - Thrombocytopenia [Unknown]
  - Renal failure [Unknown]
  - Proteinuria [Unknown]
  - Neutropenia [Unknown]
  - Anaemia [Unknown]
